FAERS Safety Report 5081062-8 (Version None)
Quarter: 2006Q3

REPORT INFORMATION
  Report Type: 
  Country: None (occurrence: None)
  Receive Date: 20060810
  Receipt Date: 20060731
  Transmission Date: 20061208
  Serious: Yes (Other)
  Sender: FDA-Public Use
  Company Number: B0433316A

PATIENT
  Age: 9 Month

DRUGS (4)
  1. RETROVIR [Suspect]
     Indication: HIV INFECTION
  2. EPIVIR [Suspect]
     Indication: HIV INFECTION
  3. NEVIRAPINE [Suspect]
     Indication: HIV INFECTION
  4. TUBERCULOSIS VACCINE (FORMULATION UNKNOWN) (TUBERCULOSIS VACCINE) [Suspect]
     Dosage: SINGLE DOSE

REACTIONS (6)
  - BOVINE TUBERCULOSIS [None]
  - IMMUNE RECONSTITUTION SYNDROME [None]
  - INJECTION SITE ERYTHEMA [None]
  - INJECTION SITE SWELLING [None]
  - PURULENCE [None]
  - SCAR [None]
